FAERS Safety Report 15319778 (Version 1)
Quarter: 2018Q3

REPORT INFORMATION
  Report Type: Spontaneous
  Country: US (occurrence: US)
  Receive Date: 20180827
  Receipt Date: 20180827
  Transmission Date: 20181010
  Serious: Yes (Other)
  Sender: FDA-Public Use
  Company Number: US-CONCORDIA PHARMACEUTICALS INC.-GSH201808-003051

PATIENT
  Age: 71 Year
  Sex: Female

DRUGS (3)
  1. HYDROXYCHLOROQUINE [Suspect]
     Active Substance: HYDROXYCHLOROQUINE
     Indication: RHEUMATOID ARTHRITIS
     Route: 065
  2. METHOTREXATE. [Suspect]
     Active Substance: METHOTREXATE
     Indication: RHEUMATOID ARTHRITIS
     Route: 065
  3. INFLIXIMAB [Suspect]
     Active Substance: INFLIXIMAB
     Indication: RHEUMATOID ARTHRITIS
     Route: 065

REACTIONS (12)
  - Hypoglycaemia [Unknown]
  - Pyrexia [Unknown]
  - Hyperbilirubinaemia [Unknown]
  - Acute kidney injury [Unknown]
  - Diarrhoea [Unknown]
  - Hepatic steatosis [Unknown]
  - Lactic acidosis [Unknown]
  - Disseminated intravascular coagulation [Unknown]
  - Histiocytosis haematophagic [Recovering/Resolving]
  - Thrombocytopenia [Unknown]
  - Anaemia [Unknown]
  - Histoplasmosis disseminated [Recovering/Resolving]
